FAERS Safety Report 8492827-4 (Version None)
Quarter: 2012Q3

REPORT INFORMATION
  Report Type: 
  Country: None (occurrence: None)
  Receive Date: 20120706
  Receipt Date: 20120627
  Transmission Date: 20120928
  Serious: Yes (Hospitalization)
  Sender: FDA-Public Use
  Company Number: FR-BRISTOL-MYERS SQUIBB COMPANY-16724833

PATIENT
  Age: 59 Year
  Sex: Male

DRUGS (1)
  1. SPRYCEL [Suspect]
     Indication: CHRONIC MYELOID LEUKAEMIA
     Dosage: INTERRUPTED ON 16MAY12 AND RESTAT ON 21MAY2012
     Route: 048
     Dates: start: 20110320

REACTIONS (1)
  - SPINAL CORD ISCHAEMIA [None]
